FAERS Safety Report 17137159 (Version 1)
Quarter: 2019Q4

REPORT INFORMATION
  Report Type: Spontaneous
  Country: CN (occurrence: CN)
  Receive Date: 20191210
  Receipt Date: 20191210
  Transmission Date: 20200122
  Serious: No
  Sender: FDA-Public Use
  Company Number: CN-B.BRAUN MEDICAL INC.-2077692

PATIENT
  Age: 83 Year
  Sex: Female
  Weight: 45 kg

DRUGS (1)
  1. NUTRILIPID I.V. FAT EMULSION [Suspect]
     Active Substance: SOYBEAN OIL
     Indication: ABDOMINAL PAIN
     Route: 041
     Dates: start: 20191106, end: 20191110

REACTIONS (1)
  - Pain [Recovering/Resolving]

NARRATIVE: CASE EVENT DATE: 20191110
